FAERS Safety Report 18468365 (Version 1)
Quarter: 2020Q4

REPORT INFORMATION
  Report Type: Spontaneous
  Country: PL (occurrence: PL)
  Receive Date: 20201105
  Receipt Date: 20201105
  Transmission Date: 20210114
  Serious: Yes (Other)
  Sender: FDA-Public Use
  Company Number: NVSC2020PL292596

PATIENT
  Age: 56 Year
  Sex: Male

DRUGS (4)
  1. VIT.D3 [Concomitant]
     Indication: PRODUCT USED FOR UNKNOWN INDICATION
     Dosage: 4000 THOUSAND
     Route: 065
  2. SOMATOSTATIN [Concomitant]
     Active Substance: SOMATOSTATIN
     Indication: PRODUCT USED FOR UNKNOWN INDICATION
     Dosage: UNK, EVERY 28 DAYS - AFTER NEUROSURGICAL CONSULTATION
     Route: 065
  3. METFORMIN [Suspect]
     Active Substance: METFORMIN HYDROCHLORIDE
     Indication: PRODUCT USED FOR UNKNOWN INDICATION
     Dosage: 3X1 TABLETS
     Route: 065
     Dates: start: 201403
  4. LANREOTIDE [Concomitant]
     Active Substance: LANREOTIDE
     Indication: PRODUCT USED FOR UNKNOWN INDICATION
     Dosage: 120 MG, INITIALLY EVERY 42 DAYS.
     Route: 065

REACTIONS (17)
  - Goitre [Unknown]
  - Pituitary tumour benign [Unknown]
  - Gastritis [Unknown]
  - Adenoma benign [Unknown]
  - Bone density abnormal [Unknown]
  - Insulin-like growth factor abnormal [Unknown]
  - Hypertrophy [Unknown]
  - Adenomatous polyposis coli [Unknown]
  - Diarrhoea [Unknown]
  - Tricuspid valve incompetence [Unknown]
  - Arthralgia [Recovering/Resolving]
  - Constipation [Unknown]
  - Headache [Unknown]
  - Mitral valve incompetence [Unknown]
  - Hyperhidrosis [Recovered/Resolved]
  - Diastolic dysfunction [Unknown]
  - Occult blood positive [Unknown]
